FAERS Safety Report 24541214 (Version 1)
Quarter: 2024Q4

REPORT INFORMATION
  Report Type: Spontaneous
  Country: BR (occurrence: BR)
  Receive Date: 20241023
  Receipt Date: 20241023
  Transmission Date: 20250115
  Serious: Yes (Hospitalization, Other)
  Sender: MERCK KGAA
  Company Number: BR-Merck Healthcare KGaA-2024054038

PATIENT
  Sex: Female

DRUGS (1)
  1. EUTHYROX [Suspect]
     Active Substance: LEVOTHYROXINE SODIUM
     Indication: Product used for unknown indication
     Route: 048

REACTIONS (11)
  - Fall [Unknown]
  - Head injury [Unknown]
  - Postoperative thrombosis [Unknown]
  - Tooth injury [Unknown]
  - Lip injury [Unknown]
  - Mouth haemorrhage [Unknown]
  - Nervous system disorder [Unknown]
  - Cerebral haemorrhage [Unknown]
  - Cerebral thrombosis [Unknown]
  - Embolism [Unknown]
  - Varicose vein [Not Recovered/Not Resolved]
